FAERS Safety Report 23795844 (Version 1)
Quarter: 2024Q2

REPORT INFORMATION
  Report Type: Spontaneous
  Country: US (occurrence: US)
  Receive Date: 20240429
  Receipt Date: 20240429
  Transmission Date: 20240716
  Serious: No
  Sender: FDA-Public Use
  Company Number: US-JNJFOC-20240426972

PATIENT

DRUGS (2)
  1. IMODIUM [Suspect]
     Active Substance: LOPERAMIDE HYDROCHLORIDE
     Indication: Product used for unknown indication
     Route: 065
  2. MEKTOVI [Concomitant]
     Active Substance: BINIMETINIB
     Indication: Neoplasm malignant
     Route: 065

REACTIONS (1)
  - Contraindicated product administered [Unknown]
